FAERS Safety Report 17255971 (Version 2)
Quarter: 2020Q1

REPORT INFORMATION
  Report Type: Spontaneous
  Country: CL (occurrence: EC)
  Receive Date: 20200110
  Receipt Date: 20200217
  Transmission Date: 20200409
  Serious: Yes (Death, Other)
  Sender: FDA-Public Use
  Company Number: EC-ASTELLAS-2020US000421

PATIENT
  Age: 74 Year
  Sex: Male

DRUGS (3)
  1. XTANDI [Suspect]
     Active Substance: ENZALUTAMIDE
     Indication: PROSTATE CANCER
     Route: 048
     Dates: start: 201904, end: 201912
  2. BICALUTAMIDE. [Concomitant]
     Active Substance: BICALUTAMIDE
     Indication: PRODUCT USED FOR UNKNOWN INDICATION
     Dosage: UNK UNK, UNKNOWN FREQ.
     Route: 065
  3. XTANDI [Suspect]
     Active Substance: ENZALUTAMIDE
     Route: 048

REACTIONS (8)
  - Fall [Recovered/Resolved]
  - Prostatic specific antigen increased [Unknown]
  - Malignant neoplasm progression [Fatal]
  - Humerus fracture [Recovered/Resolved]
  - Gait inability [Unknown]
  - Product availability issue [Unknown]
  - Overdose [Recovered/Resolved]
  - Bone pain [Unknown]

NARRATIVE: CASE EVENT DATE: 201903
